FAERS Safety Report 15104654 (Version 3)
Quarter: 2018Q3

REPORT INFORMATION
  Report Type: Spontaneous
  Country: SI (occurrence: SI)
  Receive Date: 20180703
  Receipt Date: 20180906
  Transmission Date: 20181010
  Serious: Yes (Other)
  Sender: FDA-Public Use
  Company Number: PHHY2018SI035547

PATIENT
  Age: 70 Year
  Sex: Female

DRUGS (2)
  1. BORTEZOMIB. [Suspect]
     Active Substance: BORTEZOMIB
     Indication: AMYLOIDOSIS
     Dosage: UNK
     Route: 065
  2. DEXAMETHASONE. [Suspect]
     Active Substance: DEXAMETHASONE
     Indication: AMYLOIDOSIS
     Dosage: UNK
     Route: 065

REACTIONS (5)
  - Oedema peripheral [Unknown]
  - Off label use [Unknown]
  - Fatigue [Unknown]
  - Constipation [Unknown]
  - Neuropathy peripheral [Recovered/Resolved]
